FAERS Safety Report 4490614-5 (Version None)
Quarter: 2004Q4

REPORT INFORMATION
  Report Type: 
  Country: None (occurrence: None)
  Receive Date: 20041028
  Receipt Date: 20041018
  Transmission Date: 20050328
  Serious: Yes (Other)
  Sender: FDA-Public Use
  Company Number: 2004081520

PATIENT
  Age: 71 Year
  Sex: Female

DRUGS (5)
  1. AMLODIPINE (AMLODIPINE) [Suspect]
     Indication: HYPERTENSION
     Dosage: 5 MG (5 MG, 1 D), ORAL
     Route: 048
     Dates: start: 20040629, end: 20041001
  2. CANESTEN-HC (CLOTRIMAZOLE, HYDROCORTISONE) [Concomitant]
  3. BENDROFLUMETHIAZIDE (BENDROFLUMETHIAZIDE) [Concomitant]
  4. ATORVASTATIN (ATORVASTATIN) [Concomitant]
  5. ATENOLOL [Concomitant]

REACTIONS (1)
  - VASCULITIC RASH [None]
